FAERS Safety Report 18650778 (Version 1)
Quarter: 2020Q4

REPORT INFORMATION
  Report Type: Spontaneous
  Country: SE (occurrence: SE)
  Receive Date: 20201223
  Receipt Date: 20201223
  Transmission Date: 20210114
  Serious: Yes (Other)
  Sender: FDA-Public Use
  Company Number: SE-AUROBINDO-AUR-APL-2020-062089

PATIENT
  Age: 64 Year
  Sex: Male

DRUGS (1)
  1. ALENDRONATE AUROBINDO 70 MG TABLETS [Suspect]
     Active Substance: ALENDRONIC ACID
     Indication: PRODUCT USED FOR UNKNOWN INDICATION
     Dosage: UNK
     Route: 065
     Dates: start: 20201008

REACTIONS (1)
  - Parophthalmia [Recovered/Resolved]

NARRATIVE: CASE EVENT DATE: 20201119
